FAERS Safety Report 11761364 (Version 6)
Quarter: 2017Q3

REPORT INFORMATION
  Report Type: Spontaneous
  Country: JP (occurrence: JP)
  Receive Date: 20151120
  Receipt Date: 20170711
  Transmission Date: 20171127
  Serious: Yes (Hospitalization, Other)
  Sender: FDA-Public Use
  Company Number: JP-GLAXOSMITHKLINE-JP2015JPN163668

PATIENT
  Age: 52 Year
  Sex: Female
  Weight: 73 kg

DRUGS (16)
  1. LAMICTAL [Suspect]
     Active Substance: LAMOTRIGINE
     Indication: BIPOLAR I DISORDER
     Dosage: 25 MG, QD
     Route: 048
     Dates: start: 20150414
  2. DOVOBET [Concomitant]
     Active Substance: BETAMETHASONE\CALCIPOTRIENE
     Indication: PSORIASIS
     Dosage: 15 G, QD
     Dates: start: 20150107
  3. LAMICTAL [Suspect]
     Active Substance: LAMOTRIGINE
     Dosage: 25 MG, BID
     Route: 048
     Dates: start: 20150501, end: 20150522
  4. LORAZEPAM. [Concomitant]
     Active Substance: LORAZEPAM
     Indication: BIPOLAR I DISORDER
     Dosage: 1 MG, BID
     Dates: start: 20140613, end: 20150529
  5. LORAZEPAM. [Concomitant]
     Active Substance: LORAZEPAM
     Indication: MANIA
     Dosage: 1 MG, PRN
     Dates: start: 20140613, end: 20150529
  6. PL [Concomitant]
     Active Substance: ACETAMINOPHEN\CAFFEINE\PROMETHAZINE\SALICYLAMIDE
     Indication: NASOPHARYNGITIS
     Dosage: 1 G, TID
     Dates: start: 20150414, end: 20150424
  7. TIGASON [Concomitant]
     Active Substance: ETRETINATE
     Indication: PSORIASIS
     Dosage: 20 MG, QD
     Dates: start: 20131017
  8. MOMETASONE FUROATE. [Concomitant]
     Active Substance: MOMETASONE FUROATE
     Indication: PSORIASIS
     Dosage: 20 G, BID
     Dates: start: 20140905
  9. TRANSAMIN TABLETS [Concomitant]
     Indication: RASH
     Dosage: 500 MG, TID
     Dates: start: 20150522, end: 20150527
  10. LOSIZOPILON [Concomitant]
     Active Substance: ZOTEPINE
     Indication: BIPOLAR I DISORDER
     Dosage: 62.5 MG, BID
     Dates: start: 20130618, end: 20150529
  11. MAGMITT [Concomitant]
     Active Substance: MAGNESIUM OXIDE
     Indication: CONSTIPATION
     Dosage: 330 MG, BID
     Dates: start: 20140508, end: 20150529
  12. TASMOLIN [Concomitant]
     Active Substance: BIPERIDEN
     Indication: PROPHYLAXIS
     Dosage: 1 MG, BID
     Dates: start: 19970206, end: 20150529
  13. LIMAS [Concomitant]
     Active Substance: LITHIUM CARBONATE
     Indication: BIPOLAR I DISORDER
     Dosage: 400 MG, BID
     Dates: start: 19921020, end: 20150529
  14. MUCODYNE TABLETS [Concomitant]
     Indication: SPUTUM RETENTION
     Dosage: 500 MG, BID
     Dates: start: 20140711, end: 20150529
  15. NOBFEN [Concomitant]
     Indication: HEADACHE
     Dosage: 60 MG, PRN
     Dates: start: 20070914, end: 20150529
  16. TRANSAMIN TABLETS [Concomitant]
     Indication: NASOPHARYNGITIS
     Dosage: 500 MG, TID
     Dates: start: 20150414, end: 20150424

REACTIONS (12)
  - Flushing [Recovered/Resolved]
  - Skin exfoliation [Recovered/Resolved]
  - Erythema multiforme [Recovered/Resolved]
  - C-reactive protein increased [Unknown]
  - Rash [Recovered/Resolved]
  - Erythema [Recovered/Resolved]
  - Rash papular [Recovered/Resolved]
  - Drug eruption [Recovered/Resolved]
  - White blood cell count increased [Unknown]
  - Toxic skin eruption [Recovered/Resolved]
  - Perivascular dermatitis [Recovered/Resolved]
  - Swelling face [Recovered/Resolved]

NARRATIVE: CASE EVENT DATE: 20150522
